FAERS Safety Report 12009671 (Version 1)
Quarter: 2016Q1

REPORT INFORMATION
  Report Type: Spontaneous
  Country: US (occurrence: None)
  Receive Date: 20160204
  Receipt Date: 20160204
  Transmission Date: 20160526
  Serious: Yes (Disabling)
  Sender: FDA-Public Use
  Company Number: None

PATIENT
  Age: 76 Year
  Sex: Female
  Weight: 52.16 kg

DRUGS (7)
  1. VITAMIN D [Concomitant]
     Active Substance: CHOLECALCIFEROL
  2. LUTEIN [Concomitant]
     Active Substance: LUTEIN
  3. MELATONIN [Concomitant]
     Active Substance: MELATONIN
  4. PROBIOTIC [Concomitant]
     Active Substance: PROBIOTICS NOS
  5. DIPHENOXYLATE ATROPINE GENERIC FOR LOMOTIL [Suspect]
     Active Substance: ATROPINE\DIPHENOXYLATE HYDROCHLORIDE
     Indication: COLITIS MICROSCOPIC
     Dosage: 1-2 PILLS DAILY AS NEEDED
     Route: 048
     Dates: start: 20130531, end: 20151215
  6. WOMAN^S VIT [Concomitant]
  7. FISH OIL [Concomitant]
     Active Substance: FISH OIL

REACTIONS (14)
  - Condition aggravated [None]
  - Dry eye [None]
  - Cognitive disorder [None]
  - Fatigue [None]
  - Decreased appetite [None]
  - Confusional state [None]
  - Mood altered [None]
  - Vision blurred [None]
  - Amnesia [None]
  - Myalgia [None]
  - Dry mouth [None]
  - Erythema [None]
  - Pruritus [None]
  - Thinking abnormal [None]

NARRATIVE: CASE EVENT DATE: 20150705
